FAERS Safety Report 13142784 (Version 2)
Quarter: 2017Q1

REPORT INFORMATION
  Report Type: Spontaneous
  Country: AR (occurrence: AR)
  Receive Date: 20170124
  Receipt Date: 20170215
  Transmission Date: 20170428
  Serious: Yes (Other)
  Sender: FDA-Public Use
  Company Number: AR-TOLMAR, INC.-2017AR000575

PATIENT
  Age: 68 Year
  Sex: Male

DRUGS (4)
  1. BICALUTAMIDE. [Concomitant]
     Active Substance: BICALUTAMIDE
  2. GOSERELIN [Concomitant]
     Active Substance: GOSERELIN
  3. ELIGARD [Suspect]
     Active Substance: LEUPROLIDE ACETATE
     Indication: PROSTATE CANCER
     Dosage: 22.5 MG, Q3MONTHS
     Route: 058
     Dates: start: 201607, end: 201701
  4. ACENOCOUMAROL [Concomitant]
     Active Substance: ACENOCOUMAROL

REACTIONS (3)
  - Gynaecomastia [Recovered/Resolved]
  - Prothrombin time abnormal [Recovered/Resolved]
  - Mastitis [Recovered/Resolved]

NARRATIVE: CASE EVENT DATE: 20160701
